FAERS Safety Report 18537389 (Version 1)
Quarter: 2020Q4

REPORT INFORMATION
  Report Type: Spontaneous
  Country: US (occurrence: US)
  Receive Date: 20201123
  Receipt Date: 20201123
  Transmission Date: 20210114
  Serious: No
  Sender: FDA-Public Use
  Company Number: US-PERRIGO-20US009029

PATIENT
  Age: 3 Year
  Sex: Female
  Weight: 22.22 kg

DRUGS (2)
  1. POLYETHYLENE GLYCOL 3350. [Suspect]
     Active Substance: POLYETHYLENE GLYCOL 3350
     Indication: BOWEL MOVEMENT IRREGULARITY
     Dosage: 8.5 TO 12.75 G, QD
     Route: 048
     Dates: start: 2016, end: 20200608
  2. SENNA                              /00142201/ [Concomitant]
     Active Substance: SENNA LEAF
     Indication: BOWEL MOVEMENT IRREGULARITY
     Dosage: UNK
     Route: 065
     Dates: end: 202006

REACTIONS (4)
  - Product administered to patient of inappropriate age [Recovered/Resolved]
  - Mood swings [Recovered/Resolved]
  - Depression [Recovered/Resolved]
  - Incorrect product administration duration [Recovered/Resolved]

NARRATIVE: CASE EVENT DATE: 2016
